FAERS Safety Report 5026156-8 (Version None)
Quarter: 2006Q2

REPORT INFORMATION
  Report Type: 
  Country: None (occurrence: None)
  Receive Date: 20060608
  Receipt Date: 19960215
  Transmission Date: 20061013
  Serious: Yes (Hospitalization)
  Sender: FDA-Public Use
  Company Number: 96-02-0019

PATIENT
  Sex: Male
  Weight: 83 kg

DRUGS (12)
  1. ETHYOL [Suspect]
     Indication: ADVERSE DRUG REACTION
     Dosage: INTRAVENOUS
     Route: 042
     Dates: start: 19951113, end: 19951113
  2. ETHYOL [Suspect]
     Indication: ADVERSE DRUG REACTION
     Dosage: INTRAVENOUS
     Route: 042
     Dates: start: 19951205, end: 19951205
  3. ETHYOL [Suspect]
     Indication: ADVERSE DRUG REACTION
     Dosage: INTRAVENOUS
     Route: 042
     Dates: start: 19951113, end: 19951228
  4. ETHYOL [Suspect]
     Indication: ADVERSE DRUG REACTION
     Dosage: INTRAVENOUS
     Route: 042
     Dates: start: 19951228, end: 19951228
  5. CARBOPLATIN [Suspect]
     Indication: MALIGNANT RESPIRATORY TRACT NEOPLASM
     Dosage: INTRAVENOUS
     Route: 042
     Dates: start: 19951113, end: 19951113
  6. CARBOPLATIN [Suspect]
     Indication: MALIGNANT RESPIRATORY TRACT NEOPLASM
     Dosage: INTRAVENOUS
     Route: 042
     Dates: start: 19951205, end: 19951205
  7. CARBOPLATIN [Suspect]
     Indication: MALIGNANT RESPIRATORY TRACT NEOPLASM
     Dosage: INTRAVENOUS
     Route: 042
     Dates: start: 19951228, end: 19951228
  8. CARBOPLATIN [Suspect]
     Indication: MALIGNANT RESPIRATORY TRACT NEOPLASM
     Dosage: INTRAVENOUS
     Route: 042
     Dates: start: 19951113, end: 19951230
  9. ETOPOSIDE [Suspect]
     Indication: MALIGNANT RESPIRATORY TRACT NEOPLASM
     Dates: start: 19951113, end: 19951115
  10. ETOPOSIDE [Suspect]
     Indication: MALIGNANT RESPIRATORY TRACT NEOPLASM
     Dates: start: 19951205, end: 19951207
  11. ETOPOSIDE [Suspect]
     Indication: MALIGNANT RESPIRATORY TRACT NEOPLASM
     Dates: start: 19951113, end: 19951230
  12. ETOPOSIDE [Suspect]
     Indication: MALIGNANT RESPIRATORY TRACT NEOPLASM
     Dates: start: 19951228, end: 19951230

REACTIONS (2)
  - SUPERIOR VENA CAVAL OCCLUSION [None]
  - VENA CAVA THROMBOSIS [None]
